FAERS Safety Report 4519592-7 (Version None)
Quarter: 2004Q4

REPORT INFORMATION
  Report Type: 
  Country: None (occurrence: None)
  Receive Date: 20041203
  Receipt Date: 20041122
  Transmission Date: 20050328
  Serious: Yes (Death)
  Sender: FDA-Public Use
  Company Number: M2004-1801

PATIENT
  Age: 51 Year
  Sex: Male

DRUGS (5)
  1. DICLOFENAC UNK UNKNOWN MANUFACTURER [Suspect]
     Dosage: 50MG TID
  2. TEMAZEPAM [Suspect]
     Dosage: 10 MG DAILY
  3. CO-CODAMOL (CODEINE/PARACETAMOL) [Suspect]
  4. VORICONAZOLE [Suspect]
  5. DOTHIEPIN (DOTHIEPIN) [Concomitant]

REACTIONS (12)
  - ACUTE RESPIRATORY DISTRESS SYNDROME [None]
  - CONDITION AGGRAVATED [None]
  - CONFUSIONAL STATE [None]
  - COUGH [None]
  - DRUG LEVEL INCREASED [None]
  - FEELING DRUNK [None]
  - HEPATIC CIRRHOSIS [None]
  - HYPOGLYCAEMIA [None]
  - LYMPHOPENIA [None]
  - PERITONEAL HAEMORRHAGE [None]
  - PYREXIA [None]
  - RESPIRATORY FAILURE [None]
